FAERS Safety Report 4565597-X (Version None)
Quarter: 2005Q1

REPORT INFORMATION
  Report Type: 
  Country: None (occurrence: None)
  Receive Date: 20050125
  Receipt Date: 20050125
  Transmission Date: 20050727
  Serious: Yes (Life-Threatening, Hospitalization)
  Sender: FDA-Public Use
  Company Number: None

PATIENT
  Age: 72 Year
  Sex: Male
  Weight: 100.2 kg

DRUGS (11)
  1. NOVOLIN 70/30 [Suspect]
     Indication: DIABETES MELLITUS
     Dosage: 80 UNITS, 40 UNITS, SUBCUTANEOUS
     Route: 058
  2. AZITHROMYCIN [Concomitant]
  3. GUAIFENESIN/CODEINE [Concomitant]
  4. INSULIN NOVOLIN [Concomitant]
  5. ISOSORBIDE MONONITRATE [Concomitant]
  6. SYNTHROID [Concomitant]
  7. LISINOPRIL [Concomitant]
  8. CLOPIDOGREL BISULFATE [Concomitant]
  9. FUROSEMIDE [Concomitant]
  10. OMEPRAZOLE [Concomitant]
  11. SIMVASTATIN [Concomitant]

REACTIONS (1)
  - HYPOGLYCAEMIA [None]
